FAERS Safety Report 9626199 (Version 3)
Quarter: 2013Q4

REPORT INFORMATION
  Report Type: Spontaneous
  Country: US (occurrence: US)
  Receive Date: 20131016
  Receipt Date: 20131104
  Transmission Date: 20140711
  Serious: Yes (Disabling, Other)
  Sender: FDA-Public Use
  Company Number: US-PFIZER INC-2013292782

PATIENT
  Sex: Female

DRUGS (1)
  1. CORTISONE ACETATE [Suspect]
     Dosage: UNK
     Dates: start: 20130614

REACTIONS (2)
  - Peripheral nerve injury [Not Recovered/Not Resolved]
  - Neuralgia [Not Recovered/Not Resolved]
